FAERS Safety Report 8684608 (Version 3)
Quarter: 2014Q2

REPORT INFORMATION
  Report Type: Report from Study
  Country: DE (occurrence: DE)
  Receive Date: 20120726
  Receipt Date: 20140521
  Transmission Date: 20141212
  Serious: Yes (Death)
  Sender: FDA-Public Use
  Company Number: DE-ROCHE-1091862

PATIENT
  Age: 75 Year
  Sex: Male
  Weight: 67.5 kg

DRUGS (6)
  1. METHOXY POLYETHYLENE GLYCOL-EPOETIN BETA [Suspect]
     Indication: RENAL FAILURE CHRONIC
     Dosage: RECENT DOSE PRIOR TO SAE ON 10/APR/2012
     Route: 040
     Dates: start: 20120306
  2. APROVEL [Concomitant]
     Route: 065
     Dates: start: 20081025
  3. NEBIVOLOL [Concomitant]
     Route: 065
     Dates: start: 20090422
  4. AMLODIPIN [Concomitant]
     Route: 065
     Dates: start: 20090827
  5. PLAVIX [Concomitant]
     Route: 065
     Dates: start: 20120410
  6. INSULIN [Concomitant]
     Route: 065
     Dates: start: 20080827

REACTIONS (1)
  - Sudden cardiac death [Fatal]
